FAERS Safety Report 6073180-2 (Version None)
Quarter: 2009Q1

REPORT INFORMATION
  Report Type: 
  Country: None (occurrence: None)
  Receive Date: 20090211
  Receipt Date: 20090203
  Transmission Date: 20090719
  Serious: Yes (Hospitalization)
  Sender: FDA-Public Use
  Company Number: US-AMGEN-QUU331803

PATIENT
  Sex: Male

DRUGS (1)
  1. ENBREL [Suspect]
     Indication: PSORIASIS
     Route: 058

REACTIONS (4)
  - CHILLS [None]
  - FLUSHING [None]
  - PROSTATIC OPERATION [None]
  - URINARY TRACT INFECTION [None]
